FAERS Safety Report 14336791 (Version 1)
Quarter: 2017Q4

REPORT INFORMATION
  Report Type: Spontaneous
  Country: US (occurrence: US)
  Receive Date: 20171229
  Receipt Date: 20171229
  Transmission Date: 20180321
  Serious: No
  Sender: FDA-Public Use
  Company Number: US-BAYER-2017-248619

PATIENT
  Age: 80 Year
  Sex: Male
  Weight: 74.97 kg

DRUGS (4)
  1. MIRALAX [Suspect]
     Active Substance: POLYETHYLENE GLYCOL 3350
     Indication: GASTROINTESTINAL DISORDER
     Dosage: ABOUT 1/2 CAP WITH FULL GLASS OF WATER DOSE
     Route: 048
     Dates: start: 201710
  2. STATIN [Concomitant]
     Active Substance: UNSPECIFIED INGREDIENT
  3. FLOMAX [Concomitant]
     Active Substance: TAMSULOSIN HYDROCHLORIDE
  4. BAYER LOW DOSE [Concomitant]
     Active Substance: ASPIRIN

REACTIONS (6)
  - Incorrect dose administered [Unknown]
  - Blood pressure increased [Not Recovered/Not Resolved]
  - Incorrect dose administered [Unknown]
  - Heart rate increased [Not Recovered/Not Resolved]
  - Off label use [Unknown]
  - Product use in unapproved indication [Unknown]

NARRATIVE: CASE EVENT DATE: 201710
